FAERS Safety Report 6878128-6 (Version None)
Quarter: 2010Q2

REPORT INFORMATION
  Report Type: 
  Country: None (occurrence: None)
  Receive Date: 20100616
  Receipt Date: 20100304
  Transmission Date: 20101027
  Serious: No
  Sender: FDA-Public Use
  Company Number: DSA_42727_2010

PATIENT
  Sex: Female

DRUGS (6)
  1. XENAZINE [Suspect]
     Indication: HUNTINGTON'S CHOREA
     Dosage: 25 MG BID ORAL
     Route: 048
     Dates: start: 20090728
  2. ZOLOFT [Concomitant]
  3. AMBIEN [Concomitant]
  4. CLONAZEPAM [Concomitant]
  5. UNSPECIFIED BLOOD PRESSURE MEDICINE [Concomitant]
  6. UNSPECIFIED ESTROGEN MEDICATION [Concomitant]

REACTIONS (1)
  - DEPRESSION [None]
